FAERS Safety Report 5626236-X (Version None)
Quarter: 2008Q1

REPORT INFORMATION
  Report Type: 
  Country: None (occurrence: None)
  Receive Date: 20080214
  Receipt Date: 20080208
  Transmission Date: 20080703
  Serious: Yes (Hospitalization)
  Sender: FDA-Public Use
  Company Number: B0507105A

PATIENT
  Age: 57 Year
  Sex: Female

DRUGS (9)
  1. ZEFIX [Suspect]
     Indication: HEPATIC CIRRHOSIS
     Dosage: 100MG PER DAY
     Route: 048
     Dates: start: 20020607
  2. FUROSEMIDE [Concomitant]
     Route: 048
  3. ALDACTONE [Concomitant]
     Route: 048
  4. URSO 250 [Concomitant]
     Indication: HEPATIC CIRRHOSIS
     Route: 048
  5. UNKNOWN DRUG [Concomitant]
     Indication: HEPATIC CIRRHOSIS
     Route: 048
  6. ZANTAC [Concomitant]
     Route: 048
  7. LACTITOL MONOHYDRATE [Concomitant]
     Route: 048
  8. LIVACT [Concomitant]
     Route: 048
  9. GLYSENNID [Concomitant]
     Route: 048

REACTIONS (1)
  - HEPATIC NEOPLASM MALIGNANT [None]
